FAERS Safety Report 5073609-2 (Version None)
Quarter: 2006Q3

REPORT INFORMATION
  Report Type: 
  Country: None (occurrence: None)
  Receive Date: 20060808
  Receipt Date: 20060731
  Transmission Date: 20061208
  Serious: Yes (Hospitalization)
  Sender: FDA-Public Use
  Company Number: FR-GLAXOSMITHKLINE-B0432686A

PATIENT
  Age: 32 Year
  Sex: Female
  Weight: 70 kg

DRUGS (3)
  1. AUGMENTIN [Suspect]
     Indication: PERITONSILLAR ABSCESS
     Route: 048
     Dates: start: 20060320, end: 20060413
  2. ORELOX [Suspect]
     Indication: PERITONSILLAR ABSCESS
     Route: 048
     Dates: start: 20060414, end: 20060418
  3. ROCEPHIN [Concomitant]
     Indication: PERITONSILLAR ABSCESS
     Dosage: 1G SINGLE DOSE
     Route: 042
     Dates: start: 20060419, end: 20060420

REACTIONS (4)
  - CLOSTRIDIAL INFECTION [None]
  - DIARRHOEA [None]
  - PSEUDOMEMBRANOUS COLITIS [None]
  - PYREXIA [None]
